FAERS Safety Report 7115162-5 (Version None)
Quarter: 2010Q4

REPORT INFORMATION
  Report Type: 
  Country: None (occurrence: None)
  Receive Date: 20101122
  Receipt Date: 20101117
  Transmission Date: 20110411
  Serious: Yes (Hospitalization)
  Sender: FDA-Public Use
  Company Number: US-BAYER-201034348NA

PATIENT
  Age: 29 Year
  Sex: Female
  Weight: 74 kg

DRUGS (3)
  1. MIRENA [Suspect]
     Indication: CONTRACEPTION
     Dosage: CONTINUOUS
     Route: 015
     Dates: start: 20070427, end: 20100630
  2. ZYRTEC [Concomitant]
     Indication: MULTIPLE ALLERGIES
     Route: 048
  3. UNKNOWN DRUG [Concomitant]
     Indication: MULTIPLE ALLERGIES
     Route: 058

REACTIONS (4)
  - ABDOMINAL DISCOMFORT [None]
  - ABDOMINAL PAIN UPPER [None]
  - ECTOPIC PREGNANCY WITH INTRAUTERINE DEVICE [None]
  - GENITAL HAEMORRHAGE [None]
